FAERS Safety Report 9065823 (Version 2)
Quarter: 2013Q1

REPORT INFORMATION
  Report Type: Spontaneous
  Country: CO (occurrence: CO)
  Receive Date: 20130214
  Receipt Date: 20130311
  Transmission Date: 20140127
  Serious: No
  Sender: FDA-Public Use
  Company Number: PHHY2013CO007595

PATIENT
  Age: 30 None
  Sex: Male

DRUGS (2)
  1. TASIGNA [Suspect]
     Indication: CHRONIC MYELOID LEUKAEMIA
     Dosage: 400 MG, TWICE DAILY
     Route: 048
     Dates: start: 20120827
  2. TASIGNA [Suspect]
     Dosage: 800 MG, DAILY
     Route: 048
     Dates: start: 201301, end: 201302

REACTIONS (6)
  - Drug dispensing error [Not Recovered/Not Resolved]
  - Rash erythematous [Recovered/Resolved]
  - Burning sensation [Recovered/Resolved]
  - Rash pruritic [Recovered/Resolved]
  - Headache [Recovered/Resolved]
  - Face oedema [Recovered/Resolved]
